FAERS Safety Report 8741806 (Version 2)
Quarter: 2013Q4

REPORT INFORMATION
  Report Type: Spontaneous
  Country: AU (occurrence: AU)
  Receive Date: 20120824
  Receipt Date: 20131031
  Transmission Date: 20140711
  Serious: Yes (Death)
  Sender: FDA-Public Use
  Company Number: AU-009507513-1208AUS009151

PATIENT
  Sex: Male

DRUGS (14)
  1. ZOCOR [Suspect]
     Dosage: 80 MG, QD
     Route: 048
  2. PRISTIQ [Suspect]
     Indication: DEPRESSION
     Dosage: 50 MG, QD
  3. DUATROL SR [Concomitant]
     Dosage: TWO 6 HOURLY, PRN
  4. ACTOS [Concomitant]
     Dosage: 15 MG, QD
  5. ALDOMET (METHYLDOPA) [Concomitant]
     Dosage: 250 MG THREE TWICE A DAY
  6. ASTRIX [Concomitant]
     Dosage: 100 MG, QAM
  7. ZANIDIP [Concomitant]
     Dosage: 20 MG, QPM
  8. KARVEZIDE [Concomitant]
     Dosage: UNK, QD
  9. LANTUS [Concomitant]
  10. METFORMIN [Concomitant]
     Dosage: 1000 MG, BID
  11. METOPROLOL [Concomitant]
     Dosage: UNK, BID
  12. NEXIUM [Concomitant]
     Dosage: 20 MG, QD
  13. NOVORAPID [Concomitant]
  14. TRITACE [Concomitant]
     Dosage: 100 MG, QPM

REACTIONS (2)
  - Death [Fatal]
  - Hyponatraemia [Recovered/Resolved]
